FAERS Safety Report 5370085-7 (Version None)
Quarter: 2007Q2

REPORT INFORMATION
  Report Type: 
  Country: None (occurrence: None)
  Receive Date: 20070626
  Receipt Date: 20070614
  Transmission Date: 20071010
  Serious: Yes (Hospitalization)
  Sender: FDA-Public Use
  Company Number: FR-JNJFOC-20070603805

PATIENT
  Age: 79 Year
  Sex: Male

DRUGS (2)
  1. RAZADYNE ER [Suspect]
     Indication: DRUG USE FOR UNKNOWN INDICATION
     Route: 048
  2. MOCLAMINE [Concomitant]

REACTIONS (1)
  - INTESTINAL OBSTRUCTION [None]
